FAERS Safety Report 8961315 (Version 1)
Quarter: 2012Q4

REPORT INFORMATION
  Report Type: 
  Country: FR (occurrence: FR)
  Receive Date: 20121213
  Receipt Date: 20121213
  Transmission Date: 20130627
  Serious: Yes (Hospitalization)
  Sender: FDA-Public Use
  Company Number: FR-COVIDIEN/TYCO HEALTHCARE/MALLINCKRODT-T201204297

PATIENT
  Sex: Male

DRUGS (1)
  1. OPTIJECT [Suspect]
     Indication: COMPUTERISED TOMOGRAM
     Dosage: 125 ml, 1 in 1 total
     Route: 065
     Dates: start: 20121023, end: 20121023

REACTIONS (1)
  - Anaphylactic shock [Recovered/Resolved]
